FAERS Safety Report 9403235 (Version 3)
Quarter: 2013Q4

REPORT INFORMATION
  Report Type: Report from Study
  Country: US (occurrence: US)
  Receive Date: 20130716
  Receipt Date: 20131119
  Transmission Date: 20140711
  Serious: Yes (Hospitalization)
  Sender: FDA-Public Use
  Company Number: US-ACTELION-A-US2013-84821

PATIENT
  Age: 44 Year
  Sex: Male

DRUGS (4)
  1. VELETRI [Suspect]
     Indication: PULMONARY ARTERIAL HYPERTENSION
     Dosage: 13 NG/KG, PER MIN
     Route: 042
     Dates: start: 20130223
  2. VELETRI [Suspect]
     Dosage: 17 NG/KG, PER MIN
     Route: 042
     Dates: start: 20130223
  3. ADCIRCA [Concomitant]
  4. COUMADIN [Concomitant]

REACTIONS (2)
  - Dermatitis contact [Recovering/Resolving]
  - Device related infection [Unknown]
